FAERS Safety Report 23657817 (Version 1)
Quarter: 2024Q1

REPORT INFORMATION
  Report Type: Spontaneous
  Country: US (occurrence: US)
  Receive Date: 20240321
  Receipt Date: 20240321
  Transmission Date: 20240410
  Serious: No
  Sender: FDA-Public Use
  Company Number: US-Accord-398861

PATIENT

DRUGS (1)
  1. LEUPROLIDE [Suspect]
     Active Substance: LEUPROLIDE
     Indication: Product used for unknown indication
     Dosage: INJECTABLE EMULSION

REACTIONS (1)
  - Product administered at inappropriate site [Unknown]
